FAERS Safety Report 9357579 (Version 1)
Quarter: 2013Q2

REPORT INFORMATION
  Report Type: Spontaneous
  Country: GR (occurrence: GR)
  Receive Date: 20130620
  Receipt Date: 20130620
  Transmission Date: 20140414
  Serious: Yes (Life-Threatening, Hospitalization)
  Sender: FDA-Public Use
  Company Number: GR-BAYER-2013-072314

PATIENT
  Age: 37 Year
  Sex: Female

DRUGS (5)
  1. CIPROFLOXACIN [Suspect]
     Indication: PYELONEPHRITIS ACUTE
  2. NORFLOXACIN [Suspect]
     Indication: CYSTITIS ESCHERICHIA
     Dosage: UNK
  3. CEFUROXIME [Concomitant]
     Indication: CYSTITIS ESCHERICHIA
     Dosage: UNK
  4. NETROMYCIN [Concomitant]
     Indication: PYELONEPHRITIS ACUTE
  5. MEROPENEM [Concomitant]

REACTIONS (7)
  - Pyelonephritis acute [Recovered/Resolved]
  - Acute respiratory failure [None]
  - Urosepsis [Recovered/Resolved]
  - Septic shock [Recovered/Resolved]
  - Renal abscess [Recovered/Resolved]
  - Pathogen resistance [None]
  - Multi-organ failure [None]
